FAERS Safety Report 9340136 (Version 1)
Quarter: 2013Q2

REPORT INFORMATION
  Report Type: Spontaneous
  Country: US (occurrence: None)
  Receive Date: 20130607
  Receipt Date: 20130607
  Transmission Date: 20140414
  Serious: Yes (Hospitalization)
  Sender: FDA-Public Use
  Company Number: None

PATIENT
  Age: 69 Year
  Sex: Male
  Weight: 112.2 kg

DRUGS (1)
  1. FUROSEMIDE [Suspect]
     Indication: OEDEMA
     Dates: start: 20130115, end: 20130503

REACTIONS (6)
  - Dizziness [None]
  - Dizziness [None]
  - Dyspnoea [None]
  - Dehydration [None]
  - Blood urea increased [None]
  - Blood creatinine increased [None]
